FAERS Safety Report 19728194 (Version 1)
Quarter: 2021Q3

REPORT INFORMATION
  Report Type: Spontaneous
  Country: NL (occurrence: NL)
  Receive Date: 20210820
  Receipt Date: 20210820
  Transmission Date: 20211014
  Serious: Yes (Other)
  Sender: FDA-Public Use
  Company Number: NL-TEVA-2021-NL-1942166

PATIENT
  Age: 54 Year
  Sex: Female
  Weight: 115 kg

DRUGS (1)
  1. AMOXICILLINE CAPSULE 500MG / BRAND NAME NOT SPECIFIED [Suspect]
     Active Substance: AMOXICILLIN
     Indication: PULPITIS DENTAL
     Dosage: 3X A DAY, 1 PIECE (FOR 5 DAYS) , THERAPY END DATE : ASKU
     Dates: start: 20210621

REACTIONS (1)
  - Diabetes mellitus inadequate control [Recovering/Resolving]

NARRATIVE: CASE EVENT DATE: 20210629
